FAERS Safety Report 9114382 (Version 1)
Quarter: 2013Q1

REPORT INFORMATION
  Report Type: Spontaneous
  Country: GB (occurrence: GB)
  Receive Date: 20130208
  Receipt Date: 20130208
  Transmission Date: 20140127
  Serious: Yes (Other)
  Sender: FDA-Public Use
  Company Number: GB-009507513-1302GBR000686

PATIENT
  Sex: Male

DRUGS (4)
  1. ISENTRESS [Suspect]
     Indication: ANTIRETROVIRAL THERAPY
     Dosage: UNK
     Route: 048
     Dates: start: 201112
  2. ETRAVIRINE [Suspect]
     Dosage: UNK
     Dates: start: 201112
  3. DARUNAVIR [Suspect]
     Dosage: UNK
     Dates: start: 201112
  4. RITONAVIR [Suspect]
     Dosage: UNK
     Dates: start: 201112

REACTIONS (2)
  - Renal failure acute [Unknown]
  - Urine abnormality [Unknown]
